FAERS Safety Report 21731920 (Version 1)
Quarter: 2022Q4

REPORT INFORMATION
  Report Type: Report from Study
  Country: US (occurrence: US)
  Receive Date: 20221215
  Receipt Date: 20221215
  Transmission Date: 20230113
  Serious: No
  Sender: FDA-Public Use
  Company Number: US-ABBVIE-22K-163-4530428-00

PATIENT
  Age: 62 Year
  Sex: Male

DRUGS (11)
  1. RINVOQ [Suspect]
     Active Substance: UPADACITINIB
     Indication: Rheumatoid arthritis
     Dosage: FORM STRENGTH 15 MILLIGRAM
     Route: 048
     Dates: start: 202109
  2. DICLOFENAC SODIUM [Concomitant]
     Active Substance: DICLOFENAC SODIUM
     Indication: Osteoarthritis
     Dosage: 75 MG, DELAYED RELEASE
     Route: 048
  3. FOLIC ACID [Concomitant]
     Active Substance: FOLIC ACID
     Indication: Rheumatoid arthritis
     Dosage: 1 MG
     Route: 048
     Dates: start: 201608
  4. RESTASIS [Concomitant]
     Active Substance: CYCLOSPORINE
     Indication: Sjogren^s syndrome
     Dosage: 0.05 % EYE DROPS IN A DROPPERETTE
     Dates: start: 2018
  5. LOSARTAN [Concomitant]
     Active Substance: LOSARTAN
     Indication: Hypertension
     Dosage: 100 MG, START DATE WAS PRIOR TO AUG 2016
     Route: 048
  6. CLOBETASOL [Concomitant]
     Active Substance: CLOBETASOL
     Indication: Psoriasis
     Dosage: 0.05 % TOPICAL CREAM?START DATE WAS PRIOR TO NOV 2016?2 WEEKS, REPEAT CYCLE IN 1 WEEK AS NEEDED
  7. CARISOPRODOL [Concomitant]
     Active Substance: CARISOPRODOL
     Indication: Osteoarthritis
     Dosage: 350 MG?START DATE WAS PRIOR TO JUL 2019
     Route: 048
  8. METHOTREXATE SODIUM [Concomitant]
     Active Substance: METHOTREXATE SODIUM
     Indication: Rheumatoid arthritis
     Dosage: 2.5 MG
     Route: 048
     Dates: start: 201608
  9. PILOCARPINE [Concomitant]
     Active Substance: PILOCARPINE
     Indication: Sjogren^s syndrome
     Dosage: 5 MILLIGRAM
     Route: 048
     Dates: start: 20170929
  10. TRIAMCINOLONE ACETONIDE [Concomitant]
     Active Substance: TRIAMCINOLONE ACETONIDE
     Indication: Psoriasis
     Dosage: 0.05 % TOPICAL OINTMENT
     Dates: start: 20210916
  11. FLUOCINONIDE [Concomitant]
     Active Substance: FLUOCINONIDE
     Indication: Psoriasis
     Dosage: 0.1 % TOPICAL CREAM
     Dates: start: 20210816

REACTIONS (4)
  - Diverticulum [Not Recovered/Not Resolved]
  - Hepatic steatosis [Not Recovered/Not Resolved]
  - Pyrexia [Unknown]
  - Genital pain [Unknown]

NARRATIVE: CASE EVENT DATE: 20220810
